FAERS Safety Report 4269464-0 (Version None)
Quarter: 2004Q1

REPORT INFORMATION
  Report Type: 
  Country: None (occurrence: None)
  Receive Date: 20040113
  Receipt Date: 20031212
  Transmission Date: 20041129
  Serious: Yes (Other)
  Sender: FDA-Public Use
  Company Number: JP-ROCHE-353933

PATIENT
  Age: 49 Year
  Sex: Male

DRUGS (3)
  1. ROCEPHIN [Suspect]
     Indication: UPPER RESPIRATORY TRACT INFLAMMATION
     Dosage: FORMULATION WAS REPORTED AS DRIP.
     Route: 050
     Dates: start: 20031025, end: 20031025
  2. ASCORBIC ACID [Concomitant]
     Dosage: FORMULATION WAS REPORTED AS DRIP
     Route: 050
     Dates: start: 20031025, end: 20031025
  3. UNKNOWN MEDICATIONS [Concomitant]
     Dosage: DRUG REPORTED AS TZ AND 100 ML WAS GIVEN.
     Dates: start: 20031225

REACTIONS (7)
  - ASTHMA [None]
  - BLOOD PRESSURE DECREASED [None]
  - DEPRESSED LEVEL OF CONSCIOUSNESS [None]
  - DYSPNOEA [None]
  - ERYTHEMA [None]
  - FEELING ABNORMAL [None]
  - SHOCK [None]
